FAERS Safety Report 9148396 (Version 1)
Quarter: 2013Q1

REPORT INFORMATION
  Report Type: Spontaneous
  Country: US (occurrence: None)
  Receive Date: 20130228
  Receipt Date: 20130228
  Transmission Date: 20140127
  Serious: Yes (Hospitalization)
  Sender: FDA-Public Use
  Company Number: None

PATIENT
  Age: 50 Year
  Sex: Female
  Weight: 102 kg

DRUGS (1)
  1. ACETAZOLAMIDE [Suspect]
     Indication: CATARACT OPERATION
     Dosage: 500 MG  X1  IV DRIP?SINGLE DOSE
     Route: 041

REACTIONS (2)
  - Dyspnoea [None]
  - Dyspnoea [None]
